FAERS Safety Report 9235802 (Version 1)
Quarter: 2013Q2

REPORT INFORMATION
  Report Type: Spontaneous
  Country: US (occurrence: None)
  Receive Date: 20130416
  Receipt Date: 20130416
  Transmission Date: 20140414
  Serious: Yes (Hospitalization)
  Sender: FDA-Public Use
  Company Number: None

PATIENT
  Age: 58 Year
  Sex: Female

DRUGS (9)
  1. VANCOMYCIN [Suspect]
     Indication: PNEUMONIA
     Route: 042
     Dates: start: 20121020, end: 20121024
  2. LORAZEPAM [Concomitant]
  3. BACITRACIN [Concomitant]
  4. TOPICAL OINTMENT [Concomitant]
  5. DOCUSATE [Concomitant]
  6. PHENYTOIN SODIUM [Concomitant]
  7. HEPARIN [Concomitant]
  8. SIMVASTATIN [Concomitant]
  9. PIPERACILLIN/TAZOBACTAM [Concomitant]

REACTIONS (1)
  - Renal failure acute [None]
